FAERS Safety Report 6103701-2 (Version None)
Quarter: 2009Q1

REPORT INFORMATION
  Report Type: 
  Country: None (occurrence: None)
  Receive Date: 20090302
  Receipt Date: 20090223
  Transmission Date: 20090719
  Serious: Yes (Death)
  Sender: FDA-Public Use
  Company Number: 198607

PATIENT
  Sex: 0

DRUGS (3)
  1. LEUCOVORIN CALCIUM [Suspect]
     Indication: PANCREATIC CARCINOMA METASTATIC
     Dosage: INTRAVENOUS
     Route: 042
  2. FLUOROURACIL [Suspect]
     Indication: PANCREATIC CARCINOMA METASTATIC
     Dosage: INTRAVENOUS
     Route: 042
  3. OXALIPLATIN [Suspect]
     Indication: PANCREATIC CARCINOMA METASTATIC
     Dosage: INTRAVENOUS
     Route: 042

REACTIONS (1)
  - CEREBROVASCULAR ACCIDENT [None]
